FAERS Safety Report 10761279 (Version 1)
Quarter: 2015Q1

REPORT INFORMATION
  Report Type: Spontaneous
  Country: US (occurrence: US)
  Receive Date: 20150204
  Receipt Date: 20150204
  Transmission Date: 20150721
  Serious: No
  Sender: FDA-Public Use
  Company Number: US-PFIZER INC-2015043250

PATIENT
  Sex: Female

DRUGS (2)
  1. NICOTINE. [Suspect]
     Active Substance: NICOTINE
     Dosage: UNK
     Route: 062
  2. NICOTROL [Suspect]
     Active Substance: NICOTINE
     Dosage: UNK
     Route: 055

REACTIONS (2)
  - Insomnia [Unknown]
  - Pruritus [Unknown]
